FAERS Safety Report 20740235 (Version 2)
Quarter: 2022Q2

REPORT INFORMATION
  Report Type: Spontaneous
  Country: US (occurrence: US)
  Receive Date: 20220422
  Receipt Date: 20220426
  Transmission Date: 20220720
  Serious: Yes (Other)
  Sender: FDA-Public Use
  Company Number: US-BAYER-2022A055106

PATIENT
  Sex: Female

DRUGS (1)
  1. MIRENA [Suspect]
     Active Substance: LEVONORGESTREL
     Dosage: 20?G/DAY
     Route: 015
     Dates: start: 201605

REACTIONS (4)
  - Embedded device [None]
  - Device breakage [None]
  - Post procedural haemorrhage [None]
  - Complication of device removal [None]
